FAERS Safety Report 6083495-X (Version None)
Quarter: 2009Q1

REPORT INFORMATION
  Report Type: 
  Country: None (occurrence: None)
  Receive Date: 20090217
  Receipt Date: 20090203
  Transmission Date: 20090719
  Serious: Yes (Hospitalization)
  Sender: FDA-Public Use
  Company Number: RENA-1000115

PATIENT
  Age: 49 Year
  Sex: Male
  Weight: 81.6 kg

DRUGS (13)
  1. RENAGEL [Suspect]
     Indication: HYPERPHOSPHATAEMIA
     Dosage: 3.2 G, TID, ORAL
     Route: 048
     Dates: start: 20060301, end: 20080401
  2. FOSRENOL (LANTHANUM CARBONATE) UNKNOWN [Concomitant]
  3. RENVELA (SEVELAMER CARBONATE) TABLET [Concomitant]
  4. ZEMPLAR (PARICALCITOL) UNKNOWN [Concomitant]
  5. GLIPIZIDE (GLIPIZIDE) UNKNOWN [Concomitant]
  6. PAROXETINE HCL [Concomitant]
  7. SENSIPAR (CINACALCET HYDROCHLORIDE) UNKNOWN [Concomitant]
  8. COUMADIN [Concomitant]
  9. INSULIN (INSULIN) UNKNOWN [Concomitant]
  10. COLACE (DOCUSATE SODIUM) UNKNOWN [Concomitant]
  11. DIATX (CYANOCOBALAMIN, FOLIC ACID, PYRIDOXINE) UNKNOWN [Concomitant]
  12. COREG (CARVEDILOL) UNKNOWN [Concomitant]
  13. LISINOPRIL [Concomitant]

REACTIONS (8)
  - BLOOD GLUCOSE DECREASED [None]
  - CONVULSION [None]
  - EYE DISORDER [None]
  - GASTROINTESTINAL DISORDER [None]
  - HYPOTENSION [None]
  - NAUSEA [None]
  - PRODUCT QUALITY ISSUE [None]
  - VOMITING [None]
